FAERS Safety Report 7859349-2 (Version None)
Quarter: 2011Q4

REPORT INFORMATION
  Report Type: 
  Country: None (occurrence: None)
  Receive Date: 20111027
  Receipt Date: 20111017
  Transmission Date: 20120403
  Serious: Yes (Death, Life-Threatening, Hospitalization, Other)
  Sender: FDA-Public Use
  Company Number: CN-GENZYME-THYM-1002783

PATIENT
  Age: 10 Year
  Sex: Male
  Weight: 30 kg

DRUGS (14)
  1. MAXIPIME [Concomitant]
     Indication: INFECTION PROPHYLAXIS
     Route: 065
  2. TIENAM [Concomitant]
     Indication: INFECTION PROPHYLAXIS
     Dosage: UNK
     Route: 065
     Dates: start: 20110919
  3. THYMOGLOBULIN [Suspect]
     Dosage: 3.75 MG/KG, QD
     Route: 042
     Dates: start: 20110831, end: 20110901
  4. FLUCONAZOLE [Concomitant]
     Indication: INFECTION PROPHYLAXIS
     Route: 065
  5. THYMOGLOBULIN [Suspect]
     Indication: APLASTIC ANAEMIA
     Dosage: 3.75 MG/KG, QD
     Route: 042
     Dates: start: 20110825, end: 20110827
  6. MEDROL [Concomitant]
     Indication: PRODUCT USED FOR UNKNOWN INDICATION
     Dosage: UNK
     Route: 065
     Dates: start: 20110823, end: 20110921
  7. METHYLPREDNISOLONE [Concomitant]
     Indication: SERUM SICKNESS-LIKE REACTION
     Dosage: 500 MG, QD
     Route: 065
     Dates: start: 20110825
  8. CIMETIDINE [Concomitant]
     Indication: PROPHYLAXIS AGAINST GASTROINTESTINAL ULCER
     Dosage: UNK
     Route: 065
     Dates: start: 20110826
  9. METHYLPREDNISOLONE [Concomitant]
     Dosage: 40 MG, TID
     Route: 065
  10. MEROPENEM [Concomitant]
     Indication: INFECTION PROPHYLAXIS
     Route: 065
  11. IMMUNE GLOBULIN NOS [Concomitant]
     Indication: PRODUCT USED FOR UNKNOWN INDICATION
     Dosage: UNK
     Route: 042
  12. VORICONAZOLE [Concomitant]
     Indication: INFECTION PROPHYLAXIS
     Dosage: UNK
     Route: 065
     Dates: start: 20110921
  13. CYCLOSPORINE [Concomitant]
     Indication: IMMUNOSUPPRESSION
     Dosage: 100 MG, Q12HR
     Route: 042
     Dates: start: 20110825
  14. PRILOSEC [Concomitant]
     Indication: PROPHYLAXIS AGAINST GASTROINTESTINAL ULCER
     Dosage: UNK
     Route: 042
     Dates: start: 20110825

REACTIONS (14)
  - CENTRAL NERVOUS SYSTEM LESION [None]
  - SERUM SICKNESS [None]
  - MOUTH ULCERATION [None]
  - DYSPHORIA [None]
  - APLASTIC ANAEMIA [None]
  - RESPIRATORY FAILURE [None]
  - HYPERTENSION [None]
  - CONVULSION [None]
  - BRONCHOPNEUMONIA [None]
  - GASTROINTESTINAL HAEMORRHAGE [None]
  - INTRA-ABDOMINAL HAEMORRHAGE [None]
  - DYSKINESIA [None]
  - HYPERTENSIVE ENCEPHALOPATHY [None]
  - MUSCLE RIGIDITY [None]
